FAERS Safety Report 7643074-7 (Version None)
Quarter: 2011Q3

REPORT INFORMATION
  Report Type: 
  Country: None (occurrence: None)
  Receive Date: 20110728
  Receipt Date: 20110722
  Transmission Date: 20111222
  Serious: Yes (Hospitalization)
  Sender: FDA-Public Use
  Company Number: FR-GILEAD-2011-0042179

PATIENT
  Sex: Male
  Weight: 60 kg

DRUGS (3)
  1. ALDACTAZINE [Concomitant]
     Indication: HYPERTENSION
     Dates: start: 20060901
  2. EFAVIRENZ [Concomitant]
     Dates: start: 20110620
  3. ATRIPLA [Suspect]
     Indication: HIV INFECTION
     Route: 048
     Dates: start: 20101215, end: 20110705

REACTIONS (8)
  - PSYCHOMOTOR RETARDATION [None]
  - DELIRIUM [None]
  - DISORIENTATION [None]
  - BALANCE DISORDER [None]
  - VERTIGO [None]
  - ATAXIA [None]
  - MALAISE [None]
  - SOMNOLENCE [None]
